FAERS Safety Report 9631147 (Version 1)
Quarter: 2013Q4

REPORT INFORMATION
  Report Type: Spontaneous
  Country: US (occurrence: US)
  Receive Date: 20131018
  Receipt Date: 20131018
  Transmission Date: 20140711
  Serious: Yes (Other)
  Sender: FDA-Public Use
  Company Number: US-AMGEN-USASP2013072022

PATIENT
  Age: 47 Year
  Sex: Female

DRUGS (2)
  1. PROLIA [Suspect]
     Indication: OSTEOPOROSIS POSTMENOPAUSAL
     Dosage: UNK
     Route: 065
     Dates: start: 20130805
  2. CALCIUM AND VIT D [Concomitant]

REACTIONS (12)
  - Muscular weakness [Unknown]
  - Micturition urgency [Unknown]
  - Fall [Unknown]
  - Headache [Not Recovered/Not Resolved]
  - Stomatitis [Unknown]
  - Blister [Unknown]
  - Musculoskeletal stiffness [Unknown]
  - Neck pain [Unknown]
  - Back pain [Unknown]
  - Fatigue [Unknown]
  - Insomnia [Unknown]
  - Musculoskeletal pain [Unknown]
